FAERS Safety Report 15098945 (Version 3)
Quarter: 2019Q1

REPORT INFORMATION
  Report Type: Spontaneous
  Country: CO (occurrence: CO)
  Receive Date: 20180702
  Receipt Date: 20190207
  Transmission Date: 20190417
  Serious: Yes (Other)
  Sender: FDA-Public Use
  Company Number: CO-PFIZER INC-2018265589

PATIENT
  Age: 53 Year
  Sex: Female

DRUGS (13)
  1. ATORVASTATIN [Concomitant]
     Active Substance: ATORVASTATIN
     Dosage: UNK
  2. TIBOLONE [Concomitant]
     Active Substance: TIBOLONE
     Dosage: UNK
     Dates: start: 201001
  3. PANTOPRAZOLE [Concomitant]
     Active Substance: PANTOPRAZOLE
     Dosage: UNK
     Dates: start: 201602
  4. GENOTROPIN [Suspect]
     Active Substance: SOMATROPIN
     Indication: GROWTH HORMONE DEFICIENCY
     Dosage: 0.3 MG, ONCE DAILY (AT NIGHT)
     Dates: start: 201010
  5. CALCIBON [Concomitant]
     Dosage: FOR A LIFETIME
     Dates: start: 200903
  6. DOLEX [Concomitant]
     Active Substance: IBUPROFEN
     Dosage: UNK
     Dates: start: 201801
  7. VITAMIN E [Concomitant]
     Active Substance: .ALPHA.-TOCOPHEROL
     Dosage: UNK
     Dates: start: 201806
  8. BION 3 [Concomitant]
     Dosage: UNK
     Dates: start: 201701
  9. COLLAGEN [Concomitant]
     Active Substance: COLLAGEN
     Dosage: UNK
     Dates: start: 201705
  10. ARTRODAR [Concomitant]
     Active Substance: DIACEREIN
     Dosage: UNK
     Dates: start: 2010
  11. CALCITRIOL. [Concomitant]
     Active Substance: CALCITRIOL
     Dosage: FOR A LIFETIME
     Dates: start: 200903
  12. ISOFACE [Concomitant]
     Dosage: UNK
     Dates: start: 201803
  13. EUTHYROX [Concomitant]
     Active Substance: LEVOTHYROXINE SODIUM
     Dosage: FOR A LIFETIME
     Dates: start: 200903

REACTIONS (15)
  - Foot deformity [Recovered/Resolved]
  - Rotator cuff syndrome [Not Recovered/Not Resolved]
  - Oral papilloma [Recovered/Resolved]
  - Arthralgia [Unknown]
  - Duodenal neoplasm [Unknown]
  - Tenosynovitis stenosans [Recovered/Resolved]
  - Dizziness [Unknown]
  - Limb mass [Recovered/Resolved]
  - Pruritus generalised [Unknown]
  - Palpitations [Unknown]
  - Pain [Unknown]
  - Musculoskeletal pain [Unknown]
  - Rotator cuff syndrome [Recovered/Resolved]
  - Irritable bowel syndrome [Unknown]
  - Headache [Unknown]

NARRATIVE: CASE EVENT DATE: 201206
